FAERS Safety Report 9671138 (Version 1)
Quarter: 2013Q4

REPORT INFORMATION
  Report Type: Spontaneous
  Country: US (occurrence: US)
  Receive Date: 20131106
  Receipt Date: 20131106
  Transmission Date: 20140711
  Serious: No
  Sender: FDA-Public Use
  Company Number: US-PFIZER INC-2013313272

PATIENT
  Age: 33 Year
  Sex: Female
  Weight: 97.51 kg

DRUGS (4)
  1. LYRICA [Suspect]
     Indication: FIBROMYALGIA
     Dosage: 100 MG, 3X/DAY
     Route: 048
     Dates: start: 200909, end: 201310
  2. KLONOPIN [Concomitant]
     Dosage: UNK
  3. PAXIL [Concomitant]
     Indication: ANXIETY
     Dosage: UNK
  4. ATENOLOL [Concomitant]
     Indication: TACHYCARDIA
     Dosage: UNK

REACTIONS (2)
  - Fibromyalgia [Not Recovered/Not Resolved]
  - Pain [Not Recovered/Not Resolved]
